FAERS Safety Report 24594856 (Version 1)
Quarter: 2024Q4

REPORT INFORMATION
  Report Type: Spontaneous
  Country: US (occurrence: None)
  Receive Date: 20241108
  Receipt Date: 20241108
  Transmission Date: 20250114
  Serious: Yes (Other)
  Sender: Public
  Company Number: None

PATIENT
  Age: 41 Year
  Sex: Male

DRUGS (2)
  1. VIVITROL [Suspect]
     Active Substance: NALTREXONE
     Dosage: 380 MG MONTHLY INTRAMUSCULAR?
     Route: 030
     Dates: start: 20240515, end: 20240615
  2. VIVITROL [Concomitant]
     Active Substance: NALTREXONE
     Dates: start: 20240515, end: 20240615

REACTIONS (2)
  - Drug ineffective [None]
  - Alcohol use [None]

NARRATIVE: CASE EVENT DATE: 20241108
